FAERS Safety Report 18349502 (Version 1)
Quarter: 2020Q4

REPORT INFORMATION
  Report Type: Spontaneous
  Country: GB (occurrence: GB)
  Receive Date: 20201006
  Receipt Date: 20201006
  Transmission Date: 20210114
  Serious: Yes (Hospitalization, Other)
  Sender: FDA-Public Use
  Company Number: GB-BIOVITRUM-2020GB5212

PATIENT
  Age: 49 Year
  Sex: Female

DRUGS (3)
  1. ANAKINRA [Suspect]
     Active Substance: ANAKINRA
     Indication: COVID-19
     Route: 042
  2. PREDNISOLONE. [Concomitant]
     Active Substance: PREDNISOLONE
  3. ANAKINRA [Suspect]
     Active Substance: ANAKINRA
     Route: 042

REACTIONS (7)
  - Haemophagocytic lymphohistiocytosis [Unknown]
  - Serum ferritin increased [Unknown]
  - Incorrect route of product administration [Recovered/Resolved]
  - Off label use [Recovered/Resolved]
  - Condition aggravated [Unknown]
  - Thrombocytopenia [Unknown]
  - Pulmonary embolism [Unknown]
